FAERS Safety Report 5388552-9 (Version None)
Quarter: 2007Q3

REPORT INFORMATION
  Report Type: 
  Country: None (occurrence: None)
  Receive Date: 20070716
  Receipt Date: 20070704
  Transmission Date: 20080115
  Serious: Yes (Other)
  Sender: FDA-Public Use
  Company Number: FR-PFIZER INC-2007049838

PATIENT
  Sex: Male
  Weight: 51 kg

DRUGS (4)
  1. SUTENT [Suspect]
     Indication: METASTATIC RENAL CELL CARCINOMA
     Route: 048
  2. KENZEN [Concomitant]
  3. OMEPRAZOLE [Concomitant]
  4. PRIMPERAN INJ [Concomitant]

REACTIONS (4)
  - ANOREXIA [None]
  - PALMAR-PLANTAR ERYTHRODYSAESTHESIA SYNDROME [None]
  - RETINAL HAEMORRHAGE [None]
  - VITREOUS HAEMORRHAGE [None]
